FAERS Safety Report 5192832-X (Version None)
Quarter: 2006Q4

REPORT INFORMATION
  Report Type: 
  Country: None (occurrence: None)
  Receive Date: 20061228
  Receipt Date: 20051129
  Transmission Date: 20070319
  Serious: No
  Sender: FDA-Public Use
  Company Number: US-GLAXOSMITHKLINE-A0583851A

PATIENT
  Age: 68 Year
  Sex: Female

DRUGS (2)
  1. FLONASE [Suspect]
     Indication: RHINITIS
     Dosage: 2SPR PER DAY
     Route: 045
     Dates: start: 20050908, end: 20051003
  2. INSULIN [Concomitant]

REACTIONS (1)
  - EPISTAXIS [None]
